FAERS Safety Report 6900493-1 (Version None)
Quarter: 2010Q3

REPORT INFORMATION
  Report Type: 
  Country: None (occurrence: None)
  Receive Date: 20100803
  Receipt Date: 20100722
  Transmission Date: 20110219
  Serious: Yes (Hospitalization, Disabling, Other)
  Sender: FDA-Public Use
  Company Number: GB-PFIZER INC-2010092374

PATIENT
  Age: 48 Year
  Sex: Male
  Weight: 81 kg

DRUGS (4)
  1. CHAMPIX [Suspect]
     Indication: EX-TOBACCO USER
     Dosage: UNK
     Route: 048
     Dates: start: 20100503, end: 20100515
  2. INSULIN GLARGINE [Concomitant]
     Dosage: UNK
     Route: 058
  3. SERETIDE [Concomitant]
     Indication: ASTHMA
     Dosage: 125 UG, UNK
     Route: 055
     Dates: start: 20070101
  4. SIMVASTATIN [Concomitant]
     Indication: HYPERCHOLESTEROLAEMIA
     Dosage: 40 MG, 1X/DAY
     Route: 048
     Dates: start: 20050101

REACTIONS (2)
  - CONVULSION [None]
  - URINARY INCONTINENCE [None]
